FAERS Safety Report 8477665-0 (Version None)
Quarter: 2012Q2

REPORT INFORMATION
  Report Type: 
  Country: None (occurrence: None)
  Receive Date: 20120629
  Receipt Date: 20120622
  Transmission Date: 20120825
  Serious: Yes (Death, Hospitalization)
  Sender: FDA-Public Use
  Company Number: DE-CELGENEUS-062-21880-11100332

PATIENT
  Age: 80 Year
  Sex: Female

DRUGS (2)
  1. CATECHOLAMINE [Concomitant]
     Route: 065
     Dates: start: 20111001
  2. REVLIMID [Suspect]
     Indication: MYELODYSPLASTIC SYNDROME
     Dosage: 5 MILLIGRAM
     Route: 048
     Dates: start: 20110915, end: 20110926

REACTIONS (2)
  - DYSPNOEA [None]
  - PULMONARY SEPSIS [None]
